FAERS Safety Report 24396651 (Version 2)
Quarter: 2024Q4

REPORT INFORMATION
  Report Type: Spontaneous
  Country: US (occurrence: US)
  Receive Date: 20241004
  Receipt Date: 20241107
  Transmission Date: 20250115
  Serious: No
  Sender: NOVARTIS
  Company Number: US-SANDOZ-SDZ2024US083297

PATIENT
  Sex: Female
  Weight: 140.8 kg

DRUGS (4)
  1. ROSUVASTATIN [Suspect]
     Active Substance: ROSUVASTATIN
     Indication: Product used for unknown indication
     Dosage: UNK
     Route: 065
  2. ATORVASTATIN [Suspect]
     Active Substance: ATORVASTATIN
     Indication: Product used for unknown indication
     Dosage: UNK
     Route: 065
  3. LEQVIO [Suspect]
     Active Substance: INCLISIRAN SODIUM
     Indication: Hyperlipidaemia
     Dosage: 284 MG
     Route: 058
     Dates: start: 20230517, end: 20230602
  4. LEQVIO [Suspect]
     Active Substance: INCLISIRAN SODIUM
     Dosage: UNK (Q3MON LOAD , Q 6MON)
     Route: 058
     Dates: start: 20230602, end: 20230602

REACTIONS (5)
  - Peripheral swelling [Unknown]
  - Adverse drug reaction [Unknown]
  - Drug intolerance [Unknown]
  - Pain in extremity [Unknown]
  - Myalgia [Recovering/Resolving]
